FAERS Safety Report 7934975-0 (Version None)
Quarter: 2011Q4

REPORT INFORMATION
  Report Type: 
  Country: None (occurrence: None)
  Receive Date: 20111122
  Receipt Date: 20111031
  Transmission Date: 20120403
  Serious: No
  Sender: FDA-Public Use
  Company Number: US-ROXANE LABORATORIES, INC.-2011-RO-01594RO

PATIENT
  Sex: Female

DRUGS (2)
  1. PREDNISONE TAB [Suspect]
  2. MYCOPHENOLATE MOFETIL (CELLCEPT) [Concomitant]

REACTIONS (1)
  - INTRAOCULAR PRESSURE INCREASED [None]
